FAERS Safety Report 9387471 (Version 1)
Quarter: 2013Q2

REPORT INFORMATION
  Report Type: Spontaneous
  Country: SK (occurrence: None)
  Receive Date: 20130626
  Receipt Date: 20130626
  Transmission Date: 20140414
  Serious: Yes (Life-Threatening)
  Sender: FDA-Public Use
  Company Number: WIL-008-13-SK

PATIENT
  Age: 75 Year
  Sex: Male

DRUGS (1)
  1. WILATE [Suspect]
     Indication: ACQUIRED VON WILLEBRAND^S DISEASE
     Dosage: 1X 1/ CYCLICAL
     Route: 042
     Dates: start: 20130522, end: 20130522

REACTIONS (3)
  - Pyrexia [None]
  - Chills [None]
  - Oxygen saturation decreased [None]
